FAERS Safety Report 4731037-0 (Version None)
Quarter: 2005Q3

REPORT INFORMATION
  Report Type: 
  Country: None (occurrence: None)
  Receive Date: 20050726
  Receipt Date: 20040813
  Transmission Date: 20060218
  Serious: Yes (Hospitalization)
  Sender: FDA-Public Use
  Company Number: 04GER0189

PATIENT
  Sex: Female

DRUGS (3)
  1. AGGRASTAT [Suspect]
     Indication: ACUTE CORONARY SYNDROME
     Dosage: NR
     Dates: start: 20040804
  2. EPTIFIBATIDE (EPTIFIBATIDE) [Suspect]
     Indication: PROPHYLAXIS
     Dates: end: 20040308
  3. EPTIFIBATIDE (EPTIFIBATIDE) [Suspect]
     Indication: THROMBOSIS
     Dates: end: 20040308

REACTIONS (2)
  - HAEMORRHAGE [None]
  - THROMBOCYTOPENIA [None]
